FAERS Safety Report 7640783-0 (Version None)
Quarter: 2011Q3

REPORT INFORMATION
  Report Type: 
  Country: None (occurrence: None)
  Receive Date: 20110728
  Receipt Date: 20110715
  Transmission Date: 20111222
  Serious: Yes (Hospitalization, Other)
  Sender: FDA-Public Use
  Company Number: US-ELI_LILLY_AND_COMPANY-US201107005074

PATIENT
  Sex: Female
  Weight: 56.236 kg

DRUGS (6)
  1. PROZAC [Suspect]
     Dosage: 30 MG, QD
  2. MARIJUANA [Concomitant]
  3. PROZAC [Suspect]
     Dosage: 10 MG, QD
  4. PROZAC [Suspect]
     Dosage: 20 MG, QD
  5. PROZAC [Suspect]
     Dosage: 40 MG, QD
  6. BENADRYL [Concomitant]
     Indication: INSOMNIA
     Dosage: UNK, PRN

REACTIONS (6)
  - DEPRESSION [None]
  - SUICIDAL IDEATION [None]
  - OVERDOSE [None]
  - TOXICITY TO VARIOUS AGENTS [None]
  - HOMICIDE [None]
  - SELF INJURIOUS BEHAVIOUR [None]
